FAERS Safety Report 18450500 (Version 2)
Quarter: 2020Q4

REPORT INFORMATION
  Report Type: Spontaneous
  Country: US (occurrence: US)
  Receive Date: 20201030
  Receipt Date: 20201120
  Transmission Date: 20210114
  Serious: Yes (Other)
  Sender: FDA-Public Use
  Company Number: US-TEVA-2020-US-1843433

PATIENT
  Sex: Male

DRUGS (15)
  1. VALSARTAN TEVA [Suspect]
     Active Substance: VALSARTAN
     Indication: HYPERTENSION
     Dosage: DOSAGE: 40MILLIGRAM
     Route: 065
     Dates: start: 20160626, end: 20160922
  2. VALSARTAN MACLEODS [Suspect]
     Active Substance: VALSARTAN
     Indication: HYPERTENSION
     Dosage: DOSAGE: 40 MILLIGRAM
     Route: 065
     Dates: start: 20190410, end: 20191006
  3. PERCOCET 10MG [Concomitant]
  4. VALSARTAN ACTAVIS [Suspect]
     Active Substance: VALSARTAN
     Indication: HYPERTENSION
     Dosage: DOSAGE: 80MILLIGRAM
     Route: 065
     Dates: start: 20121219, end: 20121222
  5. VALSARTAN TEVA [Suspect]
     Active Substance: VALSARTAN
     Dosage: DOSAGE: 40MILLIGRAM
     Route: 065
     Dates: start: 20160616, end: 20170703
  6. VALSARTAN QUALITEST [Suspect]
     Active Substance: VALSARTAN
     Indication: HYPERTENSION
     Dosage: DOSAGE: 40 MILLIGRAM
     Route: 065
     Dates: start: 20160212, end: 20160328
  7. ROSUVASTATIN. [Concomitant]
     Active Substance: ROSUVASTATIN
     Indication: HYPERLIPIDAEMIA
  8. VALSARTAN SANDOZ [Suspect]
     Active Substance: VALSARTAN
     Indication: HYPERTENSION
     Dosage: DOSAGE: 40 MILLIGRAM
     Route: 065
     Dates: start: 20150511, end: 20150808
  9. VALSARTAN LUPIN [Suspect]
     Active Substance: VALSARTAN
     Indication: HYPERTENSION
     Dosage: DOSAGE: 40 MILLIGRAM
     Route: 065
     Dates: start: 20150724, end: 20150802
  10. VALSARTAN SANDOZ [Suspect]
     Active Substance: VALSARTAN
     Indication: HYPERTENSION
     Dosage: DOSAGE: 40 MILLIGRAM
     Route: 065
     Dates: start: 20151123, end: 20160106
  11. INSULIN [Concomitant]
     Active Substance: INSULIN NOS
     Indication: TYPE 2 DIABETES MELLITUS
  12. VALSARTAN MYLAN [Suspect]
     Active Substance: VALSARTAN
     Dosage: DOSAGE: 40 MILLIGRAM
     Route: 065
     Dates: start: 20160616, end: 20160625
  13. VALSARTAN TEVA [Suspect]
     Active Substance: VALSARTAN
     Dosage: DOSAGE: 40MILLIGRAM
     Route: 065
     Dates: start: 20160923, end: 20161221
  14. VALSARTAN MYLAN [Suspect]
     Active Substance: VALSARTAN
     Indication: HYPERTENSION
     Dosage: DOSAGE: 40 MILLIGRAM
     Route: 065
     Dates: start: 20150824, end: 20151007
  15. METFORMIN [Concomitant]
     Active Substance: METFORMIN HYDROCHLORIDE
     Indication: TYPE 2 DIABETES MELLITUS

REACTIONS (2)
  - Small intestine carcinoma [Unknown]
  - Hepatic cancer metastatic [Unknown]
